FAERS Safety Report 10891641 (Version 5)
Quarter: 2016Q2

REPORT INFORMATION
  Report Type: Report from Study
  Country: CA (occurrence: CA)
  Receive Date: 20150306
  Receipt Date: 20160522
  Transmission Date: 20160815
  Serious: Yes (Death, Hospitalization, Disabling, Other)
  Sender: FDA-Public Use
  Company Number: PHHY2015CA003670

PATIENT
  Age: 78 Year
  Sex: Female

DRUGS (2)
  1. LETROZOLE. [Concomitant]
     Active Substance: LETROZOLE
     Indication: PRODUCT USED FOR UNKNOWN INDICATION
     Dosage: 2.5 MG, DAILY
     Route: 048
  2. ZOMETA [Suspect]
     Active Substance: ZOLEDRONIC ACID
     Indication: BREAST CANCER METASTATIC
     Dosage: 4 MG, EVERY 4 WEEKS
     Route: 042
     Dates: start: 20140430, end: 20150215

REACTIONS (12)
  - Hemiparesis [Unknown]
  - Dysarthria [Unknown]
  - Cerebrovascular accident [Recovering/Resolving]
  - Dysphagia [Unknown]
  - Gait disturbance [Unknown]
  - Mental disorder [Unknown]
  - Poor venous access [Unknown]
  - Death [Fatal]
  - Sensory loss [Unknown]
  - Aphasia [Unknown]
  - Fluid intake reduced [Unknown]
  - Blood pressure systolic increased [Unknown]

NARRATIVE: CASE EVENT DATE: 20150110
